FAERS Safety Report 5965581-5 (Version None)
Quarter: 2008Q4

REPORT INFORMATION
  Report Type: 
  Country: None (occurrence: None)
  Receive Date: 20081125
  Receipt Date: 20081117
  Transmission Date: 20090506
  Serious: Yes (Other)
  Sender: FDA-Public Use
  Company Number: US-ASTRAZENECA-2008UW25775

PATIENT
  Sex: Male

DRUGS (8)
  1. SEROQUEL [Suspect]
     Indication: BIPOLAR DISORDER
     Dosage: RANGES FROM 1050 MG TO 1200 MG DAILY
     Route: 048
  2. SEROQUEL [Suspect]
     Indication: INSOMNIA
     Dosage: RANGES FROM 1050 MG TO 1200 MG DAILY
     Route: 048
  3. SEROQUEL [Suspect]
     Route: 064
  4. SEROQUEL [Suspect]
     Route: 064
  5. SEROQUEL [Suspect]
     Route: 063
  6. SEROQUEL [Suspect]
     Route: 063
  7. FLEXERIL [Concomitant]
  8. LEVOTHYROXINE SODIUM [Concomitant]

REACTIONS (2)
  - DRUG EXPOSURE VIA BREAST MILK [None]
  - TREMOR NEONATAL [None]
